FAERS Safety Report 5393218-5 (Version None)
Quarter: 2007Q3

REPORT INFORMATION
  Report Type: 
  Country: None (occurrence: None)
  Receive Date: 20070718
  Receipt Date: 20060825
  Transmission Date: 20080115
  Serious: Yes (Hospitalization)
  Sender: FDA-Public Use
  Company Number: 2006070179

PATIENT
  Age: 53 Year
  Sex: Female
  Weight: 142.8831 kg

DRUGS (6)
  1. CELEBREX [Suspect]
     Indication: ARTHRALGIA
     Dosage: 200 MG (200 MG, 1 IN 1 D); ORAL
     Route: 048
     Dates: start: 19990607, end: 20041101
  2. FUROSEMIDE [Concomitant]
  3. PRAVACHOL [Concomitant]
  4. CELEXA [Concomitant]
  5. PLAVIX [Concomitant]
  6. ZESTRIL [Concomitant]

REACTIONS (3)
  - AFFECT LABILITY [None]
  - CEREBROVASCULAR ACCIDENT [None]
  - DIABETES MELLITUS [None]
